FAERS Safety Report 5694796-9 (Version None)
Quarter: 2008Q2

REPORT INFORMATION
  Report Type: 
  Country: None (occurrence: None)
  Receive Date: 20080404
  Receipt Date: 20080320
  Transmission Date: 20081010
  Serious: Yes (Death, Life-Threatening, Hospitalization, Other)
  Sender: FDA-Public Use
  Company Number: US-BAYER-200815855GPV

PATIENT
  Age: 55 Year
  Sex: Male

DRUGS (3)
  1. ALEMTUZUMAB [Suspect]
     Indication: CHRONIC LYMPHOCYTIC LEUKAEMIA
     Route: 065
  2. QUINUPRISTIN/DALFOPRISTIN [Concomitant]
     Indication: ENTEROCOCCAL INFECTION
     Route: 065
  3. MEROPENEM [Concomitant]
     Indication: KLEBSIELLA INFECTION
     Route: 065

REACTIONS (5)
  - BACTERIAL INFECTION [None]
  - BRONCHOPULMONARY ASPERGILLOSIS [None]
  - FEBRILE NEUTROPENIA [None]
  - NEUTROPENIA [None]
  - PANCYTOPENIA [None]
